FAERS Safety Report 8520176-4 (Version None)
Quarter: 2012Q3

REPORT INFORMATION
  Report Type: 
  Country: None (occurrence: None)
  Receive Date: 20120719
  Receipt Date: 20120709
  Transmission Date: 20120928
  Serious: Yes (Hospitalization)
  Sender: FDA-Public Use
  Company Number: JP-JNJFOC-20120701096

PATIENT
  Age: 77 Year
  Sex: Male

DRUGS (3)
  1. FENTANYL CITRATE [Suspect]
     Indication: PRODUCT USED FOR UNKNOWN INDICATION
     Route: 065
  2. FENTANYL-100 [Suspect]
     Indication: CANCER PAIN
     Route: 062
  3. FENTANYL-100 [Suspect]
     Route: 062

REACTIONS (2)
  - STRESS [None]
  - PAIN [None]
